FAERS Safety Report 8459298-5 (Version None)
Quarter: 2012Q2

REPORT INFORMATION
  Report Type: 
  Country: None (occurrence: None)
  Receive Date: 20120622
  Receipt Date: 20120613
  Transmission Date: 20120825
  Serious: Yes (Other)
  Sender: FDA-Public Use
  Company Number: JP-VERTEX PHARMACEUTICALS INC.-AE-2012-004040

PATIENT
  Age: 60 Year
  Sex: Male

DRUGS (10)
  1. AMLODIPINE [Concomitant]
     Route: 048
  2. PEG-INTRON [Concomitant]
     Indication: HEPATITIS C
     Route: 058
     Dates: start: 20120306, end: 20120306
  3. PEG-INTRON [Concomitant]
     Route: 058
     Dates: start: 20120313, end: 20120313
  4. PEG-INTRON [Concomitant]
     Route: 058
     Dates: start: 20120319
  5. GLYCYRON [Concomitant]
     Route: 048
  6. REBETOL [Concomitant]
     Route: 048
     Dates: start: 20120409
  7. LEVOTHYROXINE SODIUM [Concomitant]
     Route: 048
  8. TELAVIC (TELAPREVIR) [Suspect]
     Indication: HEPATITIS C
     Route: 048
     Dates: start: 20120306
  9. REBETOL [Concomitant]
     Indication: HEPATITIS C
     Route: 048
     Dates: start: 20120306, end: 20120318
  10. REBETOL [Concomitant]
     Route: 048
     Dates: start: 20120319, end: 20120408

REACTIONS (1)
  - NEUTROPHIL COUNT DECREASED [None]
